FAERS Safety Report 18547745 (Version 2)
Quarter: 2024Q4

REPORT INFORMATION
  Report Type: Report from Study
  Country: US (occurrence: US)
  Receive Date: 20201125
  Receipt Date: 20241213
  Transmission Date: 20250115
  Serious: Yes (Death)
  Sender: NOVO NORDISK
  Company Number: US-NOVOPROD-768461

PATIENT
  Sex: Female
  Weight: 58.966 kg

DRUGS (2)
  1. NOVOLOG [Suspect]
     Active Substance: INSULIN ASPART
     Indication: Type 2 diabetes mellitus
     Dosage: SLIDING SCALE
     Route: 058
  2. TRESIBA [Suspect]
     Active Substance: INSULIN DEGLUDEC
     Indication: Type 2 diabetes mellitus
     Dosage: UNK
     Route: 058
     Dates: start: 2018, end: 202009

REACTIONS (2)
  - Gallbladder cancer [Fatal]
  - Weight decreased [Not Recovered/Not Resolved]

NARRATIVE: CASE EVENT DATE: 20200101
